FAERS Safety Report 8197939-0 (Version None)
Quarter: 2012Q1

REPORT INFORMATION
  Report Type: 
  Country: None (occurrence: None)
  Receive Date: 20120309
  Receipt Date: 20120228
  Transmission Date: 20120608
  Serious: Yes (Hospitalization)
  Sender: FDA-Public Use
  Company Number: US-CELGENEUS-163-21880-12020806

PATIENT
  Sex: Female
  Weight: 46.3 kg

DRUGS (18)
  1. REVLIMID [Suspect]
     Indication: NON-HODGKIN'S LYMPHOMA
     Dosage: 10 MILLIGRAM
     Route: 048
     Dates: start: 20091210, end: 20111025
  2. DEXAMETHASONE [Suspect]
     Indication: NON-HODGKIN'S LYMPHOMA
     Dosage: 8 MILLIGRAM
     Route: 048
     Dates: start: 20091210, end: 20111025
  3. GABAPENTIN [Concomitant]
     Indication: POST HERPETIC NEURALGIA
     Dosage: 300 MILLIGRAM
     Route: 065
     Dates: start: 20110624
  4. OXYCODONE HCL [Concomitant]
     Indication: POST HERPETIC NEURALGIA
     Dosage: 5 MILLIGRAM
     Route: 065
  5. MULTI-VITAMINS [Concomitant]
     Dosage: 1
     Route: 048
  6. DEXAMETHASONE [Suspect]
     Dosage: 8 MILLIGRAM
     Route: 048
     Dates: start: 20081201
  7. SERTRALINE HYDROCHLORIDE [Concomitant]
     Indication: ANXIETY
     Dosage: 100 MILLIGRAM
     Route: 065
     Dates: end: 20110217
  8. ASTEPRO [Concomitant]
     Indication: SEASONAL ALLERGY
     Dosage: 137 MICROGRAM
     Route: 065
     Dates: start: 20100726
  9. ASPIRIN [Concomitant]
     Indication: THROMBOSIS PROPHYLAXIS
     Dosage: 81 MILLIGRAM
     Route: 065
     Dates: start: 20081204
  10. ESCITALOPRAM [Concomitant]
     Indication: ANXIETY
     Dosage: 10 MILLIGRAM
     Route: 065
     Dates: start: 20110217
  11. CLARINEX [Concomitant]
     Indication: SEASONAL ALLERGY
     Dosage: 5 MILLIGRAM
     Route: 065
     Dates: start: 20090820, end: 20100510
  12. AMOXICILLIN [Concomitant]
     Route: 065
     Dates: start: 20100801, end: 20100801
  13. REVLIMID [Suspect]
     Dosage: 10 MILLIGRAM
     Route: 048
     Dates: start: 20081204, end: 20091118
  14. VALACYCLOVIR [Concomitant]
     Dosage: 500 MILLIGRAM
     Route: 065
     Dates: start: 20110624
  15. RITUXIMAB [Concomitant]
     Indication: NON-HODGKIN'S LYMPHOMA
     Dosage: 375 MILLIGRAM/SQ. METER
     Route: 065
     Dates: start: 20090206, end: 20090227
  16. PRAVACHOL [Concomitant]
     Dosage: 10 MILLIGRAM
     Route: 065
  17. AMBIEN [Concomitant]
     Indication: INSOMNIA
     Dosage: 5 MILLIGRAM
     Route: 065
     Dates: start: 20100726
  18. OXYCODONE HCL [Concomitant]
     Dosage: 7.5 MILLIGRAM
     Route: 065
     Dates: start: 20110624

REACTIONS (1)
  - ACUTE LYMPHOCYTIC LEUKAEMIA [None]
